FAERS Safety Report 10042636 (Version 1)
Quarter: 2014Q1

REPORT INFORMATION
  Report Type: Spontaneous
  Country: JP (occurrence: JP)
  Receive Date: 20140327
  Receipt Date: 20140327
  Transmission Date: 20141002
  Serious: Yes (Other)
  Sender: FDA-Public Use
  Company Number: JP-PFIZER INC-2014084885

PATIENT
  Age: 78 Year
  Sex: Female

DRUGS (3)
  1. LYRICA [Suspect]
     Indication: SPINAL COLUMN STENOSIS
     Dosage: 100 MG, DAILY
     Route: 048
  2. LOXONIN [Interacting]
     Indication: SPINAL COLUMN STENOSIS
     Dosage: 60 MG, DAILY
     Route: 048
  3. BAYASPIRIN [Interacting]
     Indication: MITRAL VALVE PROLAPSE
     Dosage: 100 MG, DAILY
     Route: 048

REACTIONS (3)
  - Food interaction [Recovered/Resolved]
  - Angioedema [Recovered/Resolved]
  - Rash [Recovered/Resolved]
